FAERS Safety Report 20388213 (Version 2)
Quarter: 2022Q3

REPORT INFORMATION
  Report Type: Spontaneous
  Country: NL (occurrence: NL)
  Receive Date: 20220128
  Receipt Date: 20220726
  Transmission Date: 20221027
  Serious: Yes (Death, Other)
  Sender: FDA-Public Use
  Company Number: NL-CELLTRION HEALTHCARE HUNGARY KFT-2022NL000299

PATIENT
  Age: 75 Year
  Sex: Male

DRUGS (12)
  1. DOCETAXEL [Suspect]
     Active Substance: DOCETAXEL
     Indication: HER2 positive salivary gland cancer
     Dosage: 75 MILLIGRAM/SQ. METER
     Route: 065
  2. DOCETAXEL [Suspect]
     Active Substance: DOCETAXEL
     Indication: Metastatic salivary gland cancer
  3. DOCETAXEL [Suspect]
     Active Substance: DOCETAXEL
     Indication: Salivary gland cancer recurrent
  4. PERTUZUMAB [Suspect]
     Active Substance: PERTUZUMAB
     Indication: Salivary gland cancer recurrent
     Dosage: 420 MILLIGRAM
     Route: 042
  5. PERTUZUMAB [Suspect]
     Active Substance: PERTUZUMAB
     Indication: HER2 positive salivary gland cancer
     Dosage: 840 MILLIGRAM
     Route: 042
  6. PERTUZUMAB [Suspect]
     Active Substance: PERTUZUMAB
     Indication: Metastatic salivary gland cancer
  7. TRASTUZUMAB [Suspect]
     Active Substance: TRASTUZUMAB
     Indication: Metastatic salivary gland cancer
     Dosage: UNK
     Route: 065
  8. TRASTUZUMAB [Suspect]
     Active Substance: TRASTUZUMAB
     Indication: HER2 positive salivary gland cancer
  9. TRASTUZUMAB [Suspect]
     Active Substance: TRASTUZUMAB
     Indication: Salivary gland cancer recurrent
  10. ADO-TRASTUZUMAB EMTANSINE [Suspect]
     Active Substance: ADO-TRASTUZUMAB EMTANSINE
     Indication: HER2 positive salivary gland cancer
     Dosage: 3.6 MILLIGRAM/KILOGRAM
     Route: 042
  11. ADO-TRASTUZUMAB EMTANSINE [Suspect]
     Active Substance: ADO-TRASTUZUMAB EMTANSINE
     Indication: Salivary gland cancer recurrent
  12. ADO-TRASTUZUMAB EMTANSINE [Suspect]
     Active Substance: ADO-TRASTUZUMAB EMTANSINE
     Indication: Metastatic salivary gland cancer

REACTIONS (3)
  - Death [Fatal]
  - Therapy partial responder [Unknown]
  - Off label use [Unknown]
